FAERS Safety Report 14695861 (Version 1)
Quarter: 2018Q1

REPORT INFORMATION
  Report Type: Spontaneous
  Country: TR (occurrence: TR)
  Receive Date: 20180329
  Receipt Date: 20180329
  Transmission Date: 20180509
  Serious: Yes (Other)
  Sender: FDA-Public Use
  Company Number: TR-FRESENIUS KABI-FK201803840

PATIENT
  Age: 40 Year
  Sex: Male

DRUGS (3)
  1. GEMCITABINE [Suspect]
     Active Substance: GEMCITABINE\GEMCITABINE HYDROCHLORIDE
     Indication: BURKITT^S LYMPHOMA RECURRENT
     Route: 065
  2. CISPLATIN. [Suspect]
     Active Substance: CISPLATIN
     Indication: BURKITT^S LYMPHOMA RECURRENT
  3. RITUXIMAB. [Suspect]
     Active Substance: RITUXIMAB
     Indication: BURKITT^S LYMPHOMA RECURRENT

REACTIONS (4)
  - Off label use [Unknown]
  - Bundle branch block left [Unknown]
  - Product use in unapproved indication [Unknown]
  - Acute myocardial infarction [Unknown]
